FAERS Safety Report 5496734-0 (Version None)
Quarter: 2007Q4

REPORT INFORMATION
  Report Type: 
  Country: None (occurrence: None)
  Receive Date: 20071025
  Receipt Date: 20070831
  Transmission Date: 20080405
  Serious: No
  Sender: FDA-Public Use
  Company Number: A0668674A

PATIENT
  Age: 71 Year
  Sex: Female

DRUGS (18)
  1. ADVAIR DISKUS 100/50 [Suspect]
     Indication: CHRONIC OBSTRUCTIVE PULMONARY DISEASE
     Dosage: 1PUFF TWICE PER DAY
     Route: 055
     Dates: start: 20070701
  2. CYTOMEL [Concomitant]
     Indication: THYROID DISORDER
     Dosage: .5TAB IN THE MORNING
  3. LEVOTHYROXINE SODIUM [Concomitant]
     Indication: THYROID DISORDER
     Dosage: 1TAB IN THE MORNING
  4. ALTACE [Concomitant]
  5. METHADOSE [Concomitant]
     Indication: PAIN
     Dosage: 1TAB THREE TIMES PER DAY
  6. FUROSEMIDE [Concomitant]
     Dosage: 1TAB IN THE MORNING
  7. AMITIZA [Concomitant]
     Indication: CONSTIPATION
  8. SIMVASTATIN [Concomitant]
     Dosage: 1TAB PER DAY
  9. LYRICA [Concomitant]
     Indication: PAIN
     Dosage: 1TAB AT NIGHT
  10. FEMARA [Concomitant]
     Dosage: 1TAB IN THE MORNING
  11. NEURONTIN [Concomitant]
     Indication: PAIN
     Dosage: 300MG THREE TIMES PER DAY
  12. OXYGEN [Concomitant]
  13. LANTUS [Concomitant]
     Dosage: 10UNIT IN THE MORNING
  14. SPIRIVA [Concomitant]
     Indication: CHRONIC OBSTRUCTIVE PULMONARY DISEASE
     Dosage: 1PUFF IN THE MORNING
  15. FORADIL [Concomitant]
     Indication: CHRONIC OBSTRUCTIVE PULMONARY DISEASE
     Dosage: 1PUFF TWICE PER DAY
  16. LISINOPRIL [Concomitant]
  17. NITROQUICK [Concomitant]
  18. NEXIUM [Concomitant]

REACTIONS (5)
  - DIZZINESS [None]
  - DYSPNOEA [None]
  - HEART RATE INCREASED [None]
  - NERVOUSNESS [None]
  - ORAL PAIN [None]
